FAERS Safety Report 24835772 (Version 1)
Quarter: 2025Q1

REPORT INFORMATION
  Report Type: Report from Study
  Country: ZA (occurrence: ZA)
  Receive Date: 20250113
  Receipt Date: 20250113
  Transmission Date: 20250409
  Serious: Yes (Other)
  Sender: SANOFI AVENTIS
  Company Number: ZA-SA-SAC20230110001637

PATIENT
  Age: 98 Year
  Sex: Female

DRUGS (3)
  1. INSULIN GLARGINE [Suspect]
     Active Substance: INSULIN GLARGINE
     Indication: Type 2 diabetes mellitus
     Dosage: 20 IU, QD (BT)
     Route: 058
     Dates: start: 20220704
  2. INSULIN GLARGINE [Suspect]
     Active Substance: INSULIN GLARGINE
     Dosage: 24 IU, QD
     Route: 058
     Dates: start: 20240408
  3. HUMALOG [Concomitant]
     Active Substance: INSULIN LISPRO
     Dosage: 24 IU, TID

REACTIONS (7)
  - Injection site thrombosis [Recovering/Resolving]
  - Pain in extremity [Not Recovered/Not Resolved]
  - Injection site pain [Recovering/Resolving]
  - Blood glucose abnormal [Unknown]
  - Intentional dose omission [Unknown]
  - Multiple use of single-use product [Unknown]
  - Product preparation error [Unknown]
